FAERS Safety Report 16475736 (Version 2)
Quarter: 2019Q3

REPORT INFORMATION
  Report Type: Spontaneous
  Country: AU (occurrence: AU)
  Receive Date: 20190625
  Receipt Date: 20190702
  Transmission Date: 20191004
  Serious: Yes (Other)
  Sender: FDA-Public Use
  Company Number: PHHY2019AU145719

PATIENT
  Age: 57 Year
  Sex: Female

DRUGS (1)
  1. PARACETAMOL+CODEINE SANDOZ [Suspect]
     Active Substance: ACETAMINOPHEN\CODEINE PHOSPHATE
     Indication: PRODUCT USED FOR UNKNOWN INDICATION
     Dosage: UNK
     Route: 065

REACTIONS (7)
  - Tooth abscess [Unknown]
  - Malaise [Unknown]
  - Somnolence [Unknown]
  - Stress [Unknown]
  - Toothache [Unknown]
  - Fatigue [Unknown]
  - Product label issue [Unknown]

NARRATIVE: CASE EVENT DATE: 20190616
